FAERS Safety Report 5767387-9 (Version None)
Quarter: 2008Q2

REPORT INFORMATION
  Report Type: 
  Country: None (occurrence: None)
  Receive Date: 20080612
  Receipt Date: 20080606
  Transmission Date: 20081010
  Serious: Yes (Other)
  Sender: FDA-Public Use
  Company Number: B0523825A

PATIENT
  Sex: Female

DRUGS (1)
  1. ZOFRAN [Suspect]
     Route: 065
     Dates: start: 20080602

REACTIONS (2)
  - GAZE PALSY [None]
  - VISUAL FIELD DEFECT [None]
